FAERS Safety Report 13273599 (Version 3)
Quarter: 2017Q1

REPORT INFORMATION
  Report Type: Spontaneous
  Country: US (occurrence: US)
  Receive Date: 20170227
  Receipt Date: 20170322
  Transmission Date: 20170428
  Serious: Yes (Other)
  Sender: FDA-Public Use
  Company Number: US-PFIZER INC-2017079443

PATIENT
  Age: 61 Year
  Sex: Male
  Weight: 123.3 kg

DRUGS (9)
  1. MORPHINE [Concomitant]
     Active Substance: MORPHINE
  2. TREMELIMUMAB [Concomitant]
     Active Substance: TREMELIMUMAB
     Indication: HEPATIC CANCER
     Dosage: 75 MG EVERY FOUR WEEKS
     Dates: start: 20161102
  3. NADOLOL. [Concomitant]
     Active Substance: NADOLOL
  4. EPINEPHRINE. [Suspect]
     Active Substance: EPINEPHRINE
     Dosage: UNK
  5. ATORVASTATIN [Concomitant]
     Active Substance: ATORVASTATIN
  6. BENADRYL [Concomitant]
     Active Substance: DIPHENHYDRAMINE HYDROCHLORIDE
  7. PANTOPRAZOLE [Concomitant]
     Active Substance: PANTOPRAZOLE SODIUM
  8. SPIRONOLACTONE. [Concomitant]
     Active Substance: SPIRONOLACTONE
  9. DOCUSATE [Concomitant]
     Active Substance: DOCUSATE

REACTIONS (2)
  - Electrocardiogram ST segment elevation [Unknown]
  - Troponin increased [Unknown]
